FAERS Safety Report 9924343 (Version 2)
Quarter: 2014Q1

REPORT INFORMATION
  Report Type: Spontaneous
  Country: US (occurrence: US)
  Receive Date: 20140226
  Receipt Date: 20140226
  Transmission Date: 20141002
  Serious: Yes (Other)
  Sender: FDA-Public Use
  Company Number: US-GE HEALTHCARE MEDICAL DIAGNOSTICS-OSCN-PR-1004S-0086

PATIENT
  Sex: Female

DRUGS (3)
  1. OMNISCAN [Suspect]
     Indication: CEREBROVASCULAR ACCIDENT
     Route: 042
     Dates: start: 20031220, end: 20031220
  2. OMNISCAN [Suspect]
     Indication: CEREBRAL ARTERY STENOSIS
     Route: 042
     Dates: start: 20060114, end: 20060114
  3. OMNISCAN [Suspect]
     Indication: ISCHAEMIA

REACTIONS (1)
  - Nephrogenic systemic fibrosis [Not Recovered/Not Resolved]
